FAERS Safety Report 23068373 (Version 1)
Quarter: 2023Q4

REPORT INFORMATION
  Report Type: Spontaneous
  Country: US (occurrence: None)
  Receive Date: 20231013
  Receipt Date: 20231013
  Transmission Date: 20240110
  Serious: Yes (Life-Threatening, Hospitalization)
  Sender: FDA-Public Use
  Company Number: None

PATIENT
  Age: 73 Year
  Sex: Male

DRUGS (1)
  1. VERAPAMIL HCL [Suspect]
     Active Substance: VERAPAMIL HYDROCHLORIDE
     Dosage: FREQUENCY : DAILY;?
     Route: 048
     Dates: start: 20221111, end: 20221111

REACTIONS (2)
  - Bradycardia [None]
  - Atrioventricular block complete [None]

NARRATIVE: CASE EVENT DATE: 20221111
